FAERS Safety Report 11615666 (Version 4)
Quarter: 2016Q2

REPORT INFORMATION
  Report Type: Spontaneous
  Country: IT (occurrence: IT)
  Receive Date: 20151009
  Receipt Date: 20160623
  Transmission Date: 20160815
  Serious: Yes (Hospitalization)
  Sender: FDA-Public Use
  Company Number: IT-ROCHE-1644323

PATIENT
  Age: 67 Year
  Sex: Female
  Weight: 78 kg

DRUGS (6)
  1. ESBRIET [Suspect]
     Active Substance: PIRFENIDONE
     Indication: IDIOPATHIC PULMONARY FIBROSIS
     Dosage: 267MG BLISTER PACK(PVC/PE/PCTFE/ALL) 252 (4X63)CAP
     Route: 048
  2. ESBRIET [Suspect]
     Active Substance: PIRFENIDONE
     Dosage: 267MG BLISTER PACK(PVC/PE/PCTFE/ALL) 252 (4X63)CAP
     Route: 048
  3. LOPRESSOR [Concomitant]
     Active Substance: METOPROLOL TARTRATE
     Indication: HYPERTENSION
     Dosage: 200 MG PROLONGED RELEASE TABLETS 28 PROLONGED REL
     Route: 048
     Dates: start: 20050601, end: 20151003
  4. ESBRIET [Suspect]
     Active Substance: PIRFENIDONE
     Dosage: 267MG BLISTER PACK(PVC/PE/PCTFE/ALL) 252 (4X63)CAP
     Route: 048
     Dates: start: 20150701, end: 20151003
  5. IGROTON [Concomitant]
     Active Substance: CHLORTHALIDONE
     Indication: HYPERTENSION
     Dosage: 25 MG TABLETS 30 TABLETS
     Route: 048
     Dates: start: 20100501, end: 20151003
  6. ESBRIET [Suspect]
     Active Substance: PIRFENIDONE
     Dosage: 267MG BLISTER PACK(PVC/PE/PCTFE/ALL) 252 (4X63)CAP
     Route: 048

REACTIONS (1)
  - Depression [Unknown]

NARRATIVE: CASE EVENT DATE: 201508
